FAERS Safety Report 9356082 (Version 1)
Quarter: 2013Q2

REPORT INFORMATION
  Report Type: Spontaneous
  Country: DE (occurrence: DE)
  Receive Date: 20130619
  Receipt Date: 20130619
  Transmission Date: 20140414
  Serious: Yes (Death, Hospitalization)
  Sender: FDA-Public Use
  Company Number: DE-ACTELION-A-CH2013-84417

PATIENT
  Age: 31 Year
  Sex: Male

DRUGS (1)
  1. TRACLEER [Suspect]
     Indication: PULMONARY ARTERIAL HYPERTENSION
     Dosage: 125 MG, UNK
     Route: 048

REACTIONS (8)
  - Sepsis [Fatal]
  - Appendicitis [Unknown]
  - Chills [Unknown]
  - Abdominal pain [Unknown]
  - Pyrexia [Unknown]
  - Gastroenteritis [Unknown]
  - Vomiting [Unknown]
  - Diarrhoea [Unknown]
